FAERS Safety Report 6854773-9 (Version None)
Quarter: 2010Q3

REPORT INFORMATION
  Report Type: 
  Country: None (occurrence: None)
  Receive Date: 20100717
  Receipt Date: 20080110
  Transmission Date: 20110219
  Serious: No
  Sender: FDA-Public Use
  Company Number: US-PFIZER INC-2008003805

PATIENT
  Sex: Female

DRUGS (2)
  1. CHANTIX [Suspect]
  2. LYRICA [Suspect]
     Indication: FIBROMYALGIA

REACTIONS (3)
  - FATIGUE [None]
  - FEELING ABNORMAL [None]
  - INSOMNIA [None]
